FAERS Safety Report 9619569 (Version 3)
Quarter: 2013Q4

REPORT INFORMATION
  Report Type: Spontaneous
  Country: JP (occurrence: JP)
  Receive Date: 20131014
  Receipt Date: 20131030
  Transmission Date: 20140711
  Serious: Yes (Hospitalization, Other)
  Sender: FDA-Public Use
  Company Number: JP-B.I. PHARMACEUTICALS,INC./RIDGEFIELD-2013-BI-32317GD

PATIENT
  Age: 86 Year
  Sex: Male
  Weight: 47 kg

DRUGS (14)
  1. PRADAXA [Suspect]
     Indication: ATRIAL FIBRILLATION
     Dosage: 220 MG
     Route: 048
     Dates: start: 20120518, end: 20120813
  2. WARFARIN [Suspect]
     Indication: ATRIAL FIBRILLATION
     Dosage: 2 MG
     Route: 048
     Dates: start: 20120403, end: 20120510
  3. PLETAAL [Suspect]
     Indication: CEREBRAL INFARCTION
     Dosage: 200 MG
     Route: 048
     Dates: start: 20120522, end: 20120628
  4. BLOPRESS [Concomitant]
     Dosage: 8 MG
     Route: 048
     Dates: start: 20120402, end: 20120419
  5. ALDACTONE A [Concomitant]
     Dosage: 25 MG
     Route: 048
     Dates: start: 20120402, end: 20120416
  6. FUROSEMIDE [Concomitant]
     Dosage: 20 MG
     Route: 048
     Dates: start: 20120402, end: 20120628
  7. FERROMIA [Concomitant]
     Dosage: 100 MG
     Route: 048
     Dates: start: 20120402, end: 20120510
  8. TAKEPRON [Concomitant]
     Dosage: 15 MG
     Route: 048
     Dates: start: 20120404, end: 20121127
  9. PROTERNOL [Concomitant]
     Dosage: 45 MG
     Route: 048
     Dates: start: 20120511, end: 20120524
  10. MUCOSTA [Concomitant]
     Dosage: 300 MG
     Route: 048
     Dates: start: 20120529, end: 20120911
  11. DIART [Concomitant]
     Dosage: 30 MG
     Route: 048
     Dates: start: 20120627
  12. NU-LOTAN [Concomitant]
     Dosage: 37.5 MG
     Route: 048
     Dates: start: 20120831, end: 20121002
  13. NORVASC [Concomitant]
     Dosage: 37.5 MG
     Route: 048
     Dates: start: 20121021
  14. RENIVACE [Concomitant]
     Dosage: 2.5 MG
     Route: 048
     Dates: start: 20120508

REACTIONS (6)
  - Anaemia [Recovered/Resolved]
  - Small intestinal haemorrhage [Unknown]
  - Melaena [Unknown]
  - Anaemia [Not Recovered/Not Resolved]
  - Small intestine carcinoma [Unknown]
  - Metastases to lymph nodes [Unknown]
